FAERS Safety Report 5392001-4 (Version None)
Quarter: 2007Q3

REPORT INFORMATION
  Report Type: 
  Country: None (occurrence: None)
  Receive Date: 20070720
  Receipt Date: 20070712
  Transmission Date: 20080115
  Serious: Yes (Other)
  Sender: FDA-Public Use
  Company Number: BR-JNJFOC-20070600199

PATIENT
  Sex: Female
  Weight: 32 kg

DRUGS (20)
  1. TMC114 [Suspect]
     Route: 048
  2. TMC114 [Suspect]
     Indication: HIV INFECTION
     Dosage: TEMPORARY STOP
     Route: 048
  3. RITONAVIR [Suspect]
     Route: 048
  4. RITONAVIR [Suspect]
     Indication: HIV INFECTION
     Route: 048
  5. OMEPRAZOLE [Concomitant]
     Indication: GASTRITIS PROPHYLAXIS
     Route: 048
  6. SULFAMETHOXAZOLE [Concomitant]
     Indication: PNEUMOCYSTIS JIROVECI PNEUMONIA
     Route: 048
  7. TRIMETHOPRIM [Concomitant]
     Indication: PNEUMOCYSTIS JIROVECI PNEUMONIA
     Route: 048
  8. VITAMIN CAP [Concomitant]
     Indication: MEDICAL DIET
     Route: 048
  9. AZITHROMYCIN [Concomitant]
     Indication: BRONCHIECTASIS
     Route: 048
  10. FOLIC ACID [Concomitant]
     Indication: MEDICAL DIET
     Route: 048
  11. DIPIRONE [Concomitant]
     Indication: PYREXIA
     Route: 048
  12. REFRESH [Concomitant]
     Indication: CONJUNCTIVITIS
     Route: 061
  13. HERPES NOSODIO [Concomitant]
     Indication: HERPES VIRUS INFECTION
     Route: 048
  14. NISTATIN [Concomitant]
     Route: 048
  15. CEFADROXIL [Concomitant]
     Route: 048
  16. RANITIDINE [Concomitant]
     Indication: GASTRITIS
     Route: 048
  17. SODIUM DICLOFENAC [Concomitant]
     Route: 048
  18. CIPROFLOXACIN [Concomitant]
     Route: 048
  19. UREA [Concomitant]
     Indication: XERODERMA
     Dosage: STARTED PRE-TRIAL
     Route: 061
  20. ERTAPENEM [Concomitant]
     Route: 030

REACTIONS (3)
  - ALANINE AMINOTRANSFERASE INCREASED [None]
  - BLOOD ALKALINE PHOSPHATASE INCREASED [None]
  - BLOOD AMYLASE INCREASED [None]
